FAERS Safety Report 8322186-9 (Version None)
Quarter: 2012Q2

REPORT INFORMATION
  Report Type: 
  Country: None (occurrence: None)
  Receive Date: 20120430
  Receipt Date: 20110503
  Transmission Date: 20120825
  Serious: No
  Sender: FDA-Public Use
  Company Number: US-COVIDIEN/TYCO HEALTHCARE/MALLINCKRODT-T201100914

PATIENT
  Age: 73 Year
  Sex: Female

DRUGS (2)
  1. HYDROCODONE BITARTRATE + ACETAMINOPHEN [Suspect]
     Dosage: 1/2 TAB AT NOON AND 1/4 TAB AT NIGHT, QD
     Dates: end: 20110430
  2. HYDROCODONE BITARTRATE + ACETAMINOPHEN [Suspect]
     Indication: BACK PAIN
     Dosage: 1/2 TAB AT NOON, QD
     Dates: start: 20101001

REACTIONS (3)
  - PRURITUS [None]
  - RASH [None]
  - WITHDRAWAL SYNDROME [None]
